FAERS Safety Report 17912488 (Version 1)
Quarter: 2020Q2

REPORT INFORMATION
  Report Type: Spontaneous
  Country: NL (occurrence: FR)
  Receive Date: 20200618
  Receipt Date: 20200618
  Transmission Date: 20200714
  Serious: Yes (Hospitalization)
  Sender: FDA-Public Use
  Company Number: FR-FRESENIUS KABI-FK202005897

PATIENT
  Age: 55 Year
  Sex: Female
  Weight: 58 kg

DRUGS (10)
  1. GLUCOSE [Suspect]
     Active Substance: DEXTROSE
     Indication: PARENTERAL NUTRITION
     Dosage: G 50 PERCENT 1000ML, 4 BAG
     Route: 065
     Dates: start: 20200420
  2. PHYTOMENADIONE [Suspect]
     Active Substance: PHYTONADIONE
     Indication: PARENTERAL NUTRITION
     Dosage: VIT K1 10 MG, 1 BAG
     Route: 065
     Dates: start: 20200420
  3. GLUCOSE/CALCIUM [Suspect]
     Active Substance: CALCIUM\DEXTROSE
     Indication: PARENTERAL NUTRITION
     Dosage: GLUCO CA 500ML 10 PERCENT, 4 BAG
     Route: 065
     Dates: start: 20200420
  4. SODIUM CHLORIDE 20% (MANUFACTURER UNKNOWN) [Suspect]
     Active Substance: SODIUM CHLORIDE
     Indication: PARENTERAL NUTRITION
     Dosage: SODIUM CHLORIDE 20 PERCENT 500ML, 4 BAG
     Route: 065
     Dates: start: 20200420
  5. ASCORBIC ACID/PYRIDOXINE HYDROCHLORIDE/BIOTIN/FOLIC ACID/COLECALCIFEROL/CYANOCOBALAMIN/RETINOL PALMI [Suspect]
     Active Substance: VITAMINS
     Indication: PARENTERAL NUTRITION
     Dosage: 4 BAG
     Route: 065
     Dates: start: 20200420
  6. GLUCOSE 1-PHOSPHATE DISODIUM [Suspect]
     Active Substance: .ALPHA.-GLUCOSE-1-PHOSPHATE
     Indication: PARENTERAL NUTRITION
     Dosage: PO4 PHOCYTAN FL 100 ML, 4 BAG
     Route: 065
     Dates: start: 20200420
  7. AMINO ACIDS NOS [Suspect]
     Active Substance: AMINO ACIDS, SOURCE UNSPECIFIED
     Indication: PARENTERAL NUTRITION
     Dosage: 4 BAG
     Route: 065
     Dates: start: 20200420
  8. POTASSIUM CHLORIDE (MANUFACTURER UNKNOWN) [Suspect]
     Active Substance: POTASSIUM CHLORIDE
     Indication: PARENTERAL NUTRITION
     Dosage: POTASSIUM CHLORIDE 10 PERCENT 500ML, 4 BAG
     Route: 065
     Dates: start: 20200420
  9. MAGNESIUM CHLORIDE. [Suspect]
     Active Substance: MAGNESIUM CHLORIDE
     Indication: PARENTERAL NUTRITION
     Dosage: MGCL2 10 PERCENT 500 ML, 4 BAG
     Route: 065
     Dates: start: 20200420
  10. MEDIALIPIDE (GLYCERIN\LECITHIN\TRIGLYCERIDES,UNSPECIFIED LENGTH\SOYBEAN OIL) [Suspect]
     Active Substance: GLYCERIN\LECITHIN\TRIGLYCERIDES,UNSPECIFIED LENGTH\SOYBEAN OIL
     Indication: PARENTERAL NUTRITION
     Dosage: MEDIALIPIDE 500 ML, 2 BAG
     Route: 065
     Dates: start: 20200420

REACTIONS (1)
  - Pyrexia [Not Recovered/Not Resolved]

NARRATIVE: CASE EVENT DATE: 2020
